FAERS Safety Report 20946281 (Version 1)
Quarter: 2022Q2

REPORT INFORMATION
  Report Type: Report from Study
  Country: US (occurrence: US)
  Receive Date: 20220610
  Receipt Date: 20220610
  Transmission Date: 20220721
  Serious: No
  Sender: FDA-Public Use
  Company Number: US-NOVARTISTESTPH-NVSC2022US133735

PATIENT
  Sex: Male

DRUGS (1)
  1. ENTRESTO [Suspect]
     Active Substance: SACUBITRIL\VALSARTAN
     Indication: Product used for unknown indication
     Dosage: 0.5 DOSAGE FORM, QD (1/2 TABLET OF 24/26 MG)
     Route: 048
     Dates: start: 20170101

REACTIONS (2)
  - Wrong technique in product usage process [Unknown]
  - Inappropriate schedule of product administration [Unknown]
